FAERS Safety Report 8769756 (Version 2)
Quarter: 2012Q4

REPORT INFORMATION
  Report Type: 
  Country: CA (occurrence: CA)
  Receive Date: 20120905
  Receipt Date: 20120905
  Transmission Date: 20130627
  Serious: Yes (Other)
  Sender: FDA-Public Use
  Company Number: CA-009507513-1209CAN000963

PATIENT

DRUGS (1)
  1. EZETROL [Suspect]
     Indication: PRODUCT USED FOR UNKNOWN INDICATION
     Dosage: 10 mg, UNK

REACTIONS (2)
  - Pancreatitis [Unknown]
  - Convulsion [Unknown]
